FAERS Safety Report 14322451 (Version 1)
Quarter: 2017Q4

REPORT INFORMATION
  Report Type: Other
  Country: ES (occurrence: ES)
  Receive Date: 20171225
  Receipt Date: 20171225
  Transmission Date: 20180321
  Serious: Yes (Other)
  Sender: FDA-Public Use
  Company Number: ES-GLENMARK PHARMACEUTICALS-2017GMK030171

PATIENT

DRUGS (5)
  1. METAMIZOL                          /06276702/ [Interacting]
     Active Substance: METAMIZOLE
     Indication: PRODUCT USED FOR UNKNOWN INDICATION
     Dosage: UNK MEDICATION ERROR
     Route: 048
     Dates: start: 20171123, end: 20171123
  2. TRAMADOL. [Interacting]
     Active Substance: TRAMADOL
     Indication: PRODUCT USED FOR UNKNOWN INDICATION
     Dosage: UNK MEDICATION ERROR
     Route: 048
     Dates: start: 20171123, end: 20171123
  3. DEXCLORFENIRAMINA [Interacting]
     Active Substance: DEXCHLORPHENIRAMINE
     Indication: PRODUCT USED FOR UNKNOWN INDICATION
     Dosage: UNK MEDICATION ERROR
     Route: 048
     Dates: start: 20171123, end: 20171123
  4. GABAPENTIN. [Suspect]
     Active Substance: GABAPENTIN
     Indication: PRODUCT USED FOR UNKNOWN INDICATION
     Dosage: UNK MEDICATION ERROR
     Route: 048
     Dates: start: 20171123, end: 20171123
  5. FUROSEMIDA                         /00032601/ [Interacting]
     Active Substance: FUROSEMIDE
     Indication: PRODUCT USED FOR UNKNOWN INDICATION
     Dosage: UNK MEDICATION ERROR
     Route: 048
     Dates: start: 20171123, end: 20171123

REACTIONS (4)
  - Hypotension [Unknown]
  - Fall [Unknown]
  - Somnolence [Unknown]
  - Wrong patient received medication [Recovered/Resolved]

NARRATIVE: CASE EVENT DATE: 20171123
